FAERS Safety Report 9097700 (Version 1)
Quarter: 2013Q1

REPORT INFORMATION
  Report Type: Spontaneous
  Country: GB (occurrence: GB)
  Receive Date: 20130212
  Receipt Date: 20130212
  Transmission Date: 20140127
  Serious: Yes (Other)
  Sender: FDA-Public Use
  Company Number: GB-AMGEN-GBRSP2013002699

PATIENT
  Age: 46 Year
  Sex: Female
  Weight: 66.5 kg

DRUGS (3)
  1. ENBREL [Suspect]
     Indication: PSORIASIS
     Dosage: 50 MG, WEEKLY
     Route: 058
     Dates: start: 200809
  2. METHOTREXATE [Concomitant]
     Indication: PSORIATIC ARTHROPATHY
     Dosage: 20 MG, WEEKLY
     Route: 048
     Dates: start: 2008
  3. FOLIC ACID [Concomitant]
     Dosage: 5 MG X 6 WEEKLY
     Route: 048
     Dates: start: 2008

REACTIONS (3)
  - Depression [Not Recovered/Not Resolved]
  - Infection [Unknown]
  - Psoriasis [Unknown]
